FAERS Safety Report 4499656-7 (Version None)
Quarter: 2004Q4

REPORT INFORMATION
  Report Type: 
  Country: None (occurrence: None)
  Receive Date: 20041112
  Receipt Date: 20040909
  Transmission Date: 20050328
  Serious: Yes (Hospitalization)
  Sender: FDA-Public Use
  Company Number: DK-ABBOTT-04P-044-0272953-00

PATIENT
  Sex: Female

DRUGS (7)
  1. HUMIRA [Suspect]
     Indication: RHEUMATOID ARTHRITIS
     Route: 058
     Dates: start: 20020927, end: 20040728
  2. FOLIC ACID [Concomitant]
     Indication: RHEUMATOID ARTHRITIS
     Dates: start: 20010801
  3. ACETAMINOPHEN [Concomitant]
     Indication: PAIN
     Dates: start: 20040705
  4. ETIDRONATE DISODIUM [Concomitant]
     Indication: OSTEOPOROSIS
  5. MINI POTASSIUM VITAMIN [Concomitant]
     Indication: OSTEOPOROSIS
  6. PICASOL [Concomitant]
     Indication: RHEUMATOID ARTHRITIS
     Dates: start: 20010101
  7. MULTI-VITAMINS [Concomitant]
     Indication: MEDICAL DIET

REACTIONS (14)
  - ARTHROPOD BITE [None]
  - ASTHENIA [None]
  - BODY TEMPERATURE DECREASED [None]
  - BREAST PAIN [None]
  - C-REACTIVE PROTEIN INCREASED [None]
  - DRUG EFFECT DECREASED [None]
  - DYSPNOEA [None]
  - FATIGUE [None]
  - MOBILITY DECREASED [None]
  - OEDEMA PERIPHERAL [None]
  - PSORIATIC ARTHROPATHY [None]
  - PYREXIA [None]
  - RED BLOOD CELL SEDIMENTATION RATE INCREASED [None]
  - RHEUMATOID ARTHRITIS [None]
